FAERS Safety Report 20089311 (Version 1)
Quarter: 2021Q4

REPORT INFORMATION
  Report Type: Spontaneous
  Country: FR (occurrence: FR)
  Receive Date: 20211119
  Receipt Date: 20211119
  Transmission Date: 20220304
  Serious: Yes (Hospitalization, Disabling, Congenital Anomaly, Other)
  Sender: FDA-Public Use
  Company Number: FR-ABBVIE-21K-056-4166220-00

PATIENT
  Sex: Female

DRUGS (1)
  1. VALPROATE SODIUM [Suspect]
     Active Substance: VALPROATE SODIUM
     Indication: Maternal exposure timing unspecified
     Route: 064

REACTIONS (85)
  - Ear pain [Unknown]
  - Rhinitis allergic [Unknown]
  - Peritonitis [Unknown]
  - Pharyngitis [Unknown]
  - Abdominal pain [Unknown]
  - Sleep apnoea syndrome [Unknown]
  - Rectal haemorrhage [Unknown]
  - Sepsis [Unknown]
  - Neck pain [Unknown]
  - Phlebitis [Unknown]
  - Back pain [Unknown]
  - Respiratory disorder neonatal [Unknown]
  - Dysmorphism [Unknown]
  - Headache [Unknown]
  - Otitis media [Unknown]
  - Strabismus [Unknown]
  - Diarrhoea [Unknown]
  - Visual acuity reduced [Unknown]
  - Duane^s syndrome [Unknown]
  - Congenital anomaly of inner ear [Unknown]
  - Obesity [Unknown]
  - Bronchiolitis [Unknown]
  - Deafness [Unknown]
  - Back pain [Unknown]
  - Scoliosis [Unknown]
  - Sleep disorder [Unknown]
  - Lordosis [Unknown]
  - Ligament sprain [Unknown]
  - Joint laxity [Unknown]
  - Foot deformity [Unknown]
  - Snoring [Unknown]
  - Gastroduodenal ulcer [Unknown]
  - Vomiting [Unknown]
  - Presyncope [Unknown]
  - Psychogenic seizure [Unknown]
  - Epilepsy [Unknown]
  - Pain in extremity [Unknown]
  - Neuralgia [Unknown]
  - Pyrexia [Unknown]
  - Hypoglycaemia [Unknown]
  - Bronchitis [Unknown]
  - Asthma [Unknown]
  - Rhinitis [Unknown]
  - Renal colic [Unknown]
  - Dysphagia [Unknown]
  - Cervicobrachial syndrome [Unknown]
  - Vertigo [Unknown]
  - Fibromyalgia [Unknown]
  - Nightmare [Unknown]
  - Enuresis [Unknown]
  - Psychomotor retardation [Unknown]
  - Resuscitation [Unknown]
  - Fine motor skill dysfunction [Unknown]
  - Intellectual disability [Unknown]
  - Language disorder [Unknown]
  - Reading disorder [Unknown]
  - Dyscalculia [Unknown]
  - Learning disorder [Unknown]
  - Cognitive disorder [Unknown]
  - Memory impairment [Unknown]
  - Mental disorder [Unknown]
  - Decreased appetite [Unknown]
  - Behaviour disorder [Unknown]
  - Disturbance in attention [Unknown]
  - Antisocial behaviour [Unknown]
  - Anxiety [Unknown]
  - Stereotypy [Unknown]
  - Mixed anxiety and depressive disorder [Unknown]
  - Persistent depressive disorder [Unknown]
  - Nasal oedema [Unknown]
  - Somatic symptom disorder [Unknown]
  - Personality disorder [Unknown]
  - Autism spectrum disorder [Unknown]
  - Speech disorder developmental [Unknown]
  - Educational problem [Unknown]
  - Psychiatric symptom [Unknown]
  - Abscess [Unknown]
  - Dysgraphia [Unknown]
  - Malaise [Unknown]
  - Fall [Unknown]
  - Rhinorrhoea [Unknown]
  - Craniorachischisis [Unknown]
  - Loss of personal independence in daily activities [Unknown]
  - Eye movement disorder [Unknown]
  - Foetal exposure during pregnancy [Unknown]

NARRATIVE: CASE EVENT DATE: 20080401
